FAERS Safety Report 6715933-0 (Version None)
Quarter: 2010Q2

REPORT INFORMATION
  Report Type: 
  Country: None (occurrence: None)
  Receive Date: 20100507
  Receipt Date: 20100503
  Transmission Date: 20101027
  Serious: Yes (Death, Hospitalization, Other)
  Sender: FDA-Public Use
  Company Number: PHHY2010US28551

PATIENT
  Sex: Female
  Weight: 46.259 kg

DRUGS (1)
  1. EXJADE [Suspect]
     Dosage: 875 MG, DAILY
     Route: 048
     Dates: start: 20091112, end: 20100105

REACTIONS (4)
  - ABDOMINAL PAIN [None]
  - DEATH [None]
  - FALL [None]
  - SEPSIS [None]
